FAERS Safety Report 13577780 (Version 1)
Quarter: 2017Q2

REPORT INFORMATION
  Report Type: Other
  Country: FR (occurrence: FR)
  Receive Date: 20170524
  Receipt Date: 20170524
  Transmission Date: 20170830
  Serious: Yes (Hospitalization)
  Sender: FDA-Public Use
  Company Number: FR-CELLTRION INC.-2017FR006559

PATIENT

DRUGS (13)
  1. LANSOPRAZOLE. [Concomitant]
     Active Substance: LANSOPRAZOLE
     Dosage: 30 MG, DAILY
  2. IMUREL                             /00001501/ [Concomitant]
     Active Substance: AZATHIOPRINE SODIUM
     Dosage: UNK
     Dates: start: 20170202
  3. HYDROCORTISONE. [Concomitant]
     Active Substance: HYDROCORTISONE
     Dosage: UNK
     Dates: start: 20170222
  4. FLAGYL [Concomitant]
     Active Substance: METRONIDAZOLE\METRONIDAZOLE HYDROCHLORIDE
     Dosage: 500 MG, UNK
  5. INFLECTRA [Suspect]
     Active Substance: INFLIXIMAB-DYYB
     Dosage: 450 MG, CYCLIC
     Route: 065
     Dates: start: 20170222, end: 20170222
  6. CORTANCYL [Concomitant]
     Active Substance: PREDNISONE
     Dosage: 5 MG, DAILY
     Route: 065
  7. ABILIFY [Concomitant]
     Active Substance: ARIPIPRAZOLE
     Dosage: 10 MG, DAILY
  8. CORTANCYL [Concomitant]
     Active Substance: PREDNISONE
     Dosage: 30 MG, DAILY
     Route: 065
     Dates: start: 20161118
  9. CLARITHROMYCIN. [Concomitant]
     Active Substance: CLARITHROMYCIN
     Dosage: 500 MG, UNK
  10. INFLECTRA [Suspect]
     Active Substance: INFLIXIMAB-DYYB
     Indication: PRODUCT USED FOR UNKNOWN INDICATION
     Dosage: 450 MG, CYCLIC
     Route: 065
     Dates: start: 20170112, end: 20170112
  11. INFLECTRA [Suspect]
     Active Substance: INFLIXIMAB-DYYB
     Dosage: 450 MG, CYCLIC
     Route: 065
     Dates: start: 20170126, end: 20170126
  12. CORTANCYL [Concomitant]
     Active Substance: PREDNISONE
     Dosage: 70 MG, DAILY INITIALLY ON THE MORNING
     Route: 065
  13. CORTANCYL [Concomitant]
     Active Substance: PREDNISONE
     Dosage: 5 MG, 1/WEEK
     Route: 065

REACTIONS (6)
  - Electrocardiogram ST segment elevation [Recovered/Resolved]
  - Ocular hyperaemia [Recovered/Resolved]
  - Dyspnoea [Recovered/Resolved]
  - Localised oedema [Recovered/Resolved]
  - Abdominal pain [Recovered/Resolved]
  - Chills [Recovered/Resolved]

NARRATIVE: CASE EVENT DATE: 20170222
